FAERS Safety Report 20653139 (Version 1)
Quarter: 2022Q1

REPORT INFORMATION
  Report Type: Spontaneous
  Country: ES (occurrence: ES)
  Receive Date: 20220330
  Receipt Date: 20220330
  Transmission Date: 20220423
  Serious: Yes (Other)
  Sender: FDA-Public Use
  Company Number: None

PATIENT
  Age: 73 Year
  Sex: Male

DRUGS (1)
  1. SOTROVIMAB [Suspect]
     Active Substance: SOTROVIMAB
     Indication: Coronavirus infection
     Dosage: 500 MG (500MG SINGLE DOSE)
     Route: 042
     Dates: start: 20220320, end: 20220320

REACTIONS (4)
  - Atrial fibrillation [Recovering/Resolving]
  - Nausea [Recovered/Resolved]
  - Pain [Recovered/Resolved]
  - Tachypnoea [Recovered/Resolved]

NARRATIVE: CASE EVENT DATE: 20220320
